FAERS Safety Report 8540002-7 (Version None)
Quarter: 2012Q3

REPORT INFORMATION
  Report Type: 
  Country: None (occurrence: None)
  Receive Date: 20120726
  Receipt Date: 20120723
  Transmission Date: 20120928
  Serious: Yes (Hospitalization, Other)
  Sender: FDA-Public Use
  Company Number: US-ROCHE-1080633

PATIENT
  Sex: Female
  Weight: 65.83 kg

DRUGS (2)
  1. XELODA [Suspect]
     Indication: COLON CANCER
     Route: 048
     Dates: start: 20120605, end: 20120613
  2. REVLIMID [Concomitant]

REACTIONS (7)
  - INFECTION [None]
  - URINARY TRACT INFECTION [None]
  - VOMITING [None]
  - DIARRHOEA [None]
  - INTESTINAL OBSTRUCTION [None]
  - NAUSEA [None]
  - PNEUMONIA [None]
